FAERS Safety Report 6900602-4 (Version None)
Quarter: 2010Q3

REPORT INFORMATION
  Report Type: 
  Country: None (occurrence: None)
  Receive Date: 20100803
  Receipt Date: 20100723
  Transmission Date: 20110219
  Serious: Yes (Death)
  Sender: FDA-Public Use
  Company Number: MY-JNJFOC-20100705601

PATIENT
  Age: 58 Year
  Sex: Female

DRUGS (1)
  1. CAELYX [Suspect]
     Indication: OVARIAN CANCER METASTATIC
     Route: 042

REACTIONS (1)
  - MYOCARDIAL INFARCTION [None]
